FAERS Safety Report 7997797 (Version 2)
Quarter: 2015Q4

REPORT INFORMATION
  Report Type: Spontaneous
  Country: US (occurrence: US)
  Receive Date: 20110620
  Receipt Date: 20151217
  Transmission Date: 20160305
  Serious: Yes (Other)
  Sender: FDA-Public Use
  Company Number: US-ROCHE-749636

PATIENT
  Sex: Male
  Weight: 102.1 kg

DRUGS (4)
  1. INDERIDE [Concomitant]
     Active Substance: HYDROCHLOROTHIAZIDE\PROPRANOLOL HYDROCHLORIDE
     Indication: HYPERTENSION
  2. ACCUTANE [Suspect]
     Active Substance: ISOTRETINOIN
     Indication: ACNE
     Route: 065
     Dates: start: 199501, end: 199508
  3. ACCUTANE [Suspect]
     Active Substance: ISOTRETINOIN
     Route: 065
     Dates: start: 199610, end: 199703
  4. SYNTHROID [Concomitant]
     Active Substance: LEVOTHYROXINE SODIUM
     Indication: THYROID DISORDER

REACTIONS (9)
  - Inflammatory bowel disease [Unknown]
  - Gastrointestinal injury [Unknown]
  - Crohn^s disease [Unknown]
  - Colitis ulcerative [Unknown]
  - Irritable bowel syndrome [Unknown]
  - Depression [Unknown]
  - Eye haemorrhage [Unknown]
  - Large intestine polyp [Unknown]
  - Arthritis [Unknown]

NARRATIVE: CASE EVENT DATE: 1997
